FAERS Safety Report 19141058 (Version 2)
Quarter: 2021Q2

REPORT INFORMATION
  Report Type: Spontaneous
  Country: US (occurrence: US)
  Receive Date: 20210415
  Receipt Date: 20210423
  Transmission Date: 20210717
  Serious: Yes (Other)
  Sender: FDA-Public Use
  Company Number: US-GW PHARMA-202104USGW01564

PATIENT

DRUGS (2)
  1. EPIDIOLEX [Suspect]
     Active Substance: CANNABIDIOL
     Dosage: TRYING TO WEAN OFF MED (TITRATING SLOWLY WITH CAREFUL MONITIRING)
     Route: 048
     Dates: start: 2021
  2. EPIDIOLEX [Suspect]
     Active Substance: CANNABIDIOL
     Indication: EPILEPSY
     Dosage: 480 MILLIGRAM, BID (FIRST SHIPPED ON 07 JAN 2021)
     Route: 048
     Dates: start: 202101, end: 2021

REACTIONS (3)
  - Seizure [Recovering/Resolving]
  - Product dose omission issue [Unknown]
  - Product distribution issue [Unknown]

NARRATIVE: CASE EVENT DATE: 2021
